FAERS Safety Report 9664204 (Version 1)
Quarter: 2013Q4

REPORT INFORMATION
  Report Type: Spontaneous
  Country: ES (occurrence: ES)
  Receive Date: 20131101
  Receipt Date: 20131101
  Transmission Date: 20140711
  Serious: Yes (Hospitalization)
  Sender: FDA-Public Use
  Company Number: ES-SA-2013SA109143

PATIENT
  Age: 83 Year
  Sex: Male

DRUGS (6)
  1. SEGURIL [Suspect]
     Indication: PRODUCT USED FOR UNKNOWN INDICATION
     Route: 048
     Dates: start: 20111205, end: 20111229
  2. EMCONCOR COR [Suspect]
     Indication: PRODUCT USED FOR UNKNOWN INDICATION
     Dosage: STRENGTH : 5 MG
     Route: 048
     Dates: start: 20111205, end: 20111229
  3. COZAAR [Concomitant]
     Route: 048
  4. CRESTOR [Concomitant]
     Route: 048
  5. ROCALTROL [Concomitant]
     Dosage: 0.25 MCG/48H
     Route: 048
  6. DUODART [Concomitant]
     Route: 048

REACTIONS (2)
  - Head injury [Recovered/Resolved]
  - Orthostatic hypotension [Recovered/Resolved]
